FAERS Safety Report 6616094-9 (Version None)
Quarter: 2010Q1

REPORT INFORMATION
  Report Type: 
  Country: None (occurrence: None)
  Receive Date: 20100305
  Receipt Date: 20100302
  Transmission Date: 20100710
  Serious: Yes (Hospitalization, Disabling)
  Sender: FDA-Public Use
  Company Number: US-MERCK-0911USA04613

PATIENT
  Age: 66 Year
  Sex: Female
  Weight: 56 kg

DRUGS (3)
  1. FOSAMAX [Suspect]
     Indication: OSTEOPOROSIS PROPHYLAXIS
     Route: 048
     Dates: start: 20030820, end: 20070101
  2. SYNTHROID [Concomitant]
     Indication: HYPOTHYROIDISM
     Route: 065
     Dates: start: 19640101
  3. FOSAMAX PLUS D [Suspect]
     Route: 048
     Dates: start: 20070101, end: 20080814

REACTIONS (21)
  - ARTHRALGIA [None]
  - ATROPHIC VULVOVAGINITIS [None]
  - BONE DISORDER [None]
  - BURSITIS [None]
  - DACRYOSTENOSIS ACQUIRED [None]
  - DEPRESSION [None]
  - DRUG INEFFECTIVE [None]
  - DRY SKIN [None]
  - FEMUR FRACTURE [None]
  - FRACTURE NONUNION [None]
  - INCREASED TENDENCY TO BRUISE [None]
  - INTRAOCULAR PRESSURE INCREASED [None]
  - LACRIMATION INCREASED [None]
  - LOW TURNOVER OSTEOPATHY [None]
  - MUSCLE DISORDER [None]
  - MYALGIA [None]
  - OPEN ANGLE GLAUCOMA [None]
  - OSTEOARTHRITIS [None]
  - SEASONAL ALLERGY [None]
  - SLEEP DISORDER [None]
  - VIRAL INFECTION [None]
